FAERS Safety Report 25581768 (Version 1)
Quarter: 2025Q3

REPORT INFORMATION
  Report Type: Spontaneous
  Country: GB (occurrence: GB)
  Receive Date: 20250719
  Receipt Date: 20250719
  Transmission Date: 20251020
  Serious: Yes (Life-Threatening, Hospitalization, Disabling, Other)
  Sender: AUROBINDO
  Company Number: GB-MHRA-MED-202507080744550960-CLTJR

PATIENT
  Age: 37 Year
  Sex: Female
  Weight: 68 kg

DRUGS (1)
  1. DIAZEPAM [Suspect]
     Active Substance: DIAZEPAM
     Indication: Akathisia
     Route: 065
     Dates: start: 20250515, end: 20250614

REACTIONS (1)
  - Mania [Not Recovered/Not Resolved]

NARRATIVE: CASE EVENT DATE: 20250515
